FAERS Safety Report 12531920 (Version 1)
Quarter: 2016Q3

REPORT INFORMATION
  Report Type: Spontaneous
  Country: CA (occurrence: CA)
  Receive Date: 20160706
  Receipt Date: 20160706
  Transmission Date: 20161109
  Serious: Yes (Other)
  Sender: FDA-Public Use
  Company Number: CA-BAYER-2016-127270

PATIENT
  Age: 50 Year
  Sex: Female

DRUGS (3)
  1. ACETYLSALICYLIC ACID({=100 MG) [Suspect]
     Active Substance: ASPIRIN
  2. WARFARIN [Concomitant]
     Active Substance: WARFARIN
  3. HEPARIN [Concomitant]
     Active Substance: HEPARIN SODIUM

REACTIONS (3)
  - Atrial fibrillation [Recovered/Resolved]
  - Maternal exposure during pregnancy [None]
  - Supraventricular tachycardia [Recovered/Resolved]
